FAERS Safety Report 16321876 (Version 1)
Quarter: 2019Q2

REPORT INFORMATION
  Report Type: Spontaneous
  Country: US (occurrence: US)
  Receive Date: 20190412
  Receipt Date: 20190412
  Transmission Date: 20190711
  Serious: No
  Sender: FDA-Public Use
  Company Number: None

PATIENT
  Age: 73 Year
  Sex: Female

DRUGS (1)
  1. IBRANCE [Suspect]
     Active Substance: PALBOCICLIB
     Dosage: 16-APR-2019

REACTIONS (5)
  - Dehydration [None]
  - Nausea [None]
  - Headache [None]
  - Vomiting [None]
  - Renal disorder [None]

NARRATIVE: CASE EVENT DATE: 20190412
